APPROVED DRUG PRODUCT: BIORPHEN
Active Ingredient: PHENYLEPHRINE HYDROCHLORIDE
Strength: 0.5MG/5ML (0.1MG/ML)
Dosage Form/Route: SOLUTION;INTRAVENOUS
Application: N212909 | Product #001 | TE Code: AP
Applicant: DR REDDYS LABORATORIES SA
Approved: Oct 21, 2019 | RLD: Yes | RS: Yes | Type: RX